FAERS Safety Report 7676894-3 (Version None)
Quarter: 2011Q3

REPORT INFORMATION
  Report Type: 
  Country: None (occurrence: None)
  Receive Date: 20110811
  Receipt Date: 20110801
  Transmission Date: 20111222
  Serious: Yes (Hospitalization)
  Sender: FDA-Public Use
  Company Number: PHHY2011US64967

PATIENT
  Sex: Male
  Weight: 94 kg

DRUGS (9)
  1. ERGOCALCIFEROL [Concomitant]
     Dosage: UNK UKN, UNK
  2. MULTI-VITAMINS [Concomitant]
     Dosage: 2 DF, DAILY
     Route: 048
  3. SODIUM CHLORIDE CONCENTRATED INJ [Concomitant]
     Dosage: UNK UKN, IN PM
  4. ALBUTEROL SULFATE AUTOHALER [Concomitant]
     Dosage: UNK UKN, IN AM
  5. CAYSTON [Concomitant]
     Dosage: UNK UKN, UNK
  6. ZITHROMAX [Concomitant]
     Dosage: UNK UKN, UNK
  7. TOBI [Suspect]
     Indication: CYSTIC FIBROSIS
     Dosage: 300 MG, BID
  8. ADVAIR DISKUS 100/50 [Concomitant]
     Dosage: UNK UKN, UNK
  9. PULMOZYME [Concomitant]
     Dosage: UNK UKN, BID

REACTIONS (4)
  - HAEMOPTYSIS [None]
  - COUGH [None]
  - INFECTIVE PULMONARY EXACERBATION OF CYSTIC FIBROSIS [None]
  - LUNG INFECTION [None]
